FAERS Safety Report 21590248 (Version 2)
Quarter: 2023Q4

REPORT INFORMATION
  Report Type: Report from Study
  Country: US (occurrence: US)
  Receive Date: 20221114
  Receipt Date: 20231117
  Transmission Date: 20240110
  Serious: No
  Sender: FDA-Public Use
  Company Number: US-ABBVIE-4198231

PATIENT
  Sex: Female

DRUGS (1)
  1. IMBRUVICA [Suspect]
     Active Substance: IBRUTINIB
     Indication: Lymphocytic leukaemia
     Route: 048
     Dates: start: 20190614

REACTIONS (6)
  - Bladder disorder [Unknown]
  - Contusion [Unknown]
  - Skin discolouration [Unknown]
  - Skin disorder [Unknown]
  - Arthritis [Unknown]
  - Paraesthesia [Unknown]
